FAERS Safety Report 14742915 (Version 1)
Quarter: 2018Q2

REPORT INFORMATION
  Report Type: Spontaneous
  Country: CN (occurrence: CN)
  Receive Date: 20180410
  Receipt Date: 20180410
  Transmission Date: 20180711
  Serious: Yes (Other)
  Sender: FDA-Public Use
  Company Number: CN-FRESENIUS KABI-FK201804173

PATIENT
  Age: 20 Year
  Sex: Female

DRUGS (1)
  1. KABIVEN [Suspect]
     Active Substance: AMINO ACIDS\ANHYDROUS DEXTROSE\CALCIUM CHLORIDE\MAGNESIUM SULFATE HEPTAHYDRATE\POTASSIUM CHLORIDE\SODIUM ACETATE\SODIUM GLYCEROPHOSPHATE ANHYDROUS\SOYBEAN OIL
     Indication: ADJUVANT THERAPY
     Route: 041
     Dates: start: 20180118, end: 20180118

REACTIONS (1)
  - Anaphylactoid reaction [Recovered/Resolved]

NARRATIVE: CASE EVENT DATE: 20180118
